FAERS Safety Report 4471765-8 (Version None)
Quarter: 2004Q4

REPORT INFORMATION
  Report Type: 
  Country: None (occurrence: None)
  Receive Date: 20041006
  Receipt Date: 20040923
  Transmission Date: 20050328
  Serious: Yes (Other)
  Sender: FDA-Public Use
  Company Number: 2004235243HU

PATIENT
  Age: 49 Year
  Sex: Female

DRUGS (6)
  1. XANAX XR [Suspect]
     Indication: ANXIETY
     Dosage: 3 MG/DAY, ORAL   ; 50 MG, SINGLE
     Route: 048
     Dates: start: 20040809, end: 20040809
  2. ZIPRASIDONE [Suspect]
     Dosage: 40 MG, BID, ORAL   SEE IMAGE
     Route: 048
     Dates: start: 20040707, end: 20040727
  3. ZIPRASIDONE [Suspect]
     Dosage: 40 MG, BID, ORAL   SEE IMAGE
     Route: 048
     Dates: start: 20040728, end: 20040804
  4. ZIPRASIDONE [Suspect]
     Dosage: 40 MG, BID, ORAL   SEE IMAGE
     Route: 048
     Dates: start: 20040805, end: 20040809
  5. ZIPRASIDONE [Suspect]
     Dosage: 40 MG, BID, ORAL   SEE IMAGE
     Route: 048
     Dates: start: 20040809, end: 20040809
  6. ZIPRASIDONE [Suspect]
     Dosage: 40 MG, BID, ORAL   SEE IMAGE
     Route: 048
     Dates: start: 20040819

REACTIONS (4)
  - MULTIPLE DRUG OVERDOSE [None]
  - SOCIAL PROBLEM [None]
  - SOMNOLENCE [None]
  - SUICIDE ATTEMPT [None]
